FAERS Safety Report 10128405 (Version 1)
Quarter: 2014Q2

REPORT INFORMATION
  Report Type: Spontaneous
  Country: US (occurrence: US)
  Receive Date: 20140428
  Receipt Date: 20140428
  Transmission Date: 20141212
  Serious: No
  Sender: FDA-Public Use
  Company Number: US-009507513-1404USA013715

PATIENT
  Age: 24 Year
  Sex: Female
  Weight: 64.31 kg

DRUGS (1)
  1. NEXPLANON [Suspect]
     Indication: CONTRACEPTION
     Dosage: 1 DF, UNK, 1 ROD
     Route: 059
     Dates: start: 20140224

REACTIONS (1)
  - Implant site swelling [Recovering/Resolving]
